FAERS Safety Report 7467777-2 (Version None)
Quarter: 2011Q2

REPORT INFORMATION
  Report Type: 
  Country: None (occurrence: None)
  Receive Date: 20110509
  Receipt Date: 20110428
  Transmission Date: 20111010
  Serious: Yes (Other)
  Sender: FDA-Public Use
  Company Number: US-ASTRAZENECA-2011SE24924

PATIENT
  Sex: Male

DRUGS (12)
  1. LIPITOR [Concomitant]
  2. FLOMAX [Concomitant]
  3. OXYCONTIN [Concomitant]
  4. ASPIRIN [Concomitant]
  5. LASIX [Concomitant]
  6. SPIRIVA [Concomitant]
  7. COZAAR [Concomitant]
  8. ADVAIR DISKUS 100/50 [Concomitant]
  9. NEXIUM [Suspect]
     Route: 048
  10. LEVOTHYROXINE SODIUM [Concomitant]
  11. OXYCODONE [Concomitant]
     Dosage: PRN
  12. ALBUTEROL [Concomitant]
     Dosage: PRN

REACTIONS (9)
  - CHRONIC OBSTRUCTIVE PULMONARY DISEASE [None]
  - ILL-DEFINED DISORDER [None]
  - SLEEP APNOEA SYNDROME [None]
  - CHRONIC RESPIRATORY FAILURE [None]
  - DISTURBANCE IN ATTENTION [None]
  - CELLULITIS [None]
  - OEDEMA PERIPHERAL [None]
  - HYPERTENSION [None]
  - HYPERCHOLESTEROLAEMIA [None]
